FAERS Safety Report 14369124 (Version 1)
Quarter: 2018Q1

REPORT INFORMATION
  Report Type: Spontaneous
  Country: US (occurrence: US)
  Receive Date: 20180109
  Receipt Date: 20180109
  Transmission Date: 20180509
  Serious: No
  Sender: FDA-Public Use
  Company Number: US-DRREDDYS-USA/USA/17/0091312

PATIENT
  Age: 67 Year
  Sex: Male
  Weight: 97.52 kg

DRUGS (1)
  1. NICOTINE. [Suspect]
     Active Substance: NICOTINE
     Indication: SMOKING CESSATION THERAPY
     Route: 061

REACTIONS (6)
  - Application site pruritus [Unknown]
  - Application site bruise [Recovering/Resolving]
  - Application site erythema [Unknown]
  - Application site rash [Unknown]
  - Product adhesion issue [Unknown]
  - Incorrect drug administration duration [Unknown]
